FAERS Safety Report 7329540-2 (Version None)
Quarter: 2011Q1

REPORT INFORMATION
  Report Type: 
  Country: None (occurrence: None)
  Receive Date: 20110222
  Receipt Date: 20110119
  Transmission Date: 20110831
  Serious: Yes (Death, Life-Threatening, Hospitalization)
  Sender: FDA-Public Use
  Company Number: 2011SA003850

PATIENT
  Age: 67 Year
  Sex: Female

DRUGS (20)
  1. GEMCITABINE [Suspect]
     Indication: NON-SMALL CELL LUNG CANCER
     Dosage: SEE IMAGE
     Route: 041
     Dates: start: 20101025, end: 20101025
  2. GEMCITABINE [Suspect]
     Indication: NON-SMALL CELL LUNG CANCER
     Dosage: SEE IMAGE
     Route: 041
     Dates: start: 20110112, end: 20110112
  3. LYRICA [Concomitant]
  4. DEXAMETHASONE (DEXAMETHASONE) [Concomitant]
  5. PARACODINA (ALTHAEA OFFICINALIS/BENZOIC ACID/DIHYDROCODEINE BITARTRATE [Concomitant]
  6. APREPITANT (APREPITANT) [Concomitant]
  7. MAGNESIUM SULFATE [Concomitant]
  8. CISPLATIN [Suspect]
     Indication: NON-SMALL CELL LUNG CANCER
     Dosage: SEE IMAGE
     Route: 041
     Dates: start: 20110112, end: 20110112
  9. CISPLATIN [Suspect]
     Indication: NON-SMALL CELL LUNG CANCER
     Dosage: SEE IMAGE
     Route: 041
     Dates: start: 20101025, end: 20101025
  10. DEXAMETHASONE SODIUM PHOSPHATE [Concomitant]
  11. LANSOPRAZOLE [Concomitant]
  12. PLASIL (METOCLOPRAMIDE HYDROCHLORIDE) [Concomitant]
  13. LASIX [Concomitant]
  14. LACTULOSE [Concomitant]
  15. CITALOPRAM (CITALOPRAM) [Concomitant]
  16. TRANQUIRIT (DIAZEPAM) [Concomitant]
  17. OXYCONTIN [Concomitant]
  18. POTASSIUM CHLORIDE [Concomitant]
  19. OXYCODONE HYDROCHLORIDE/PARACETAMOL (OXYCODONE HYDROCHLORIDE/PARACETAM [Concomitant]
  20. KYTRIL [Concomitant]

REACTIONS (6)
  - MENTAL STATUS CHANGES [None]
  - PLEURAL EFFUSION [None]
  - CEREBRAL INFARCTION [None]
  - GRAND MAL CONVULSION [None]
  - SOMNOLENCE [None]
  - ACTIVATED PARTIAL THROMBOPLASTIN TIME PROLONGED [None]
